FAERS Safety Report 5735427-9 (Version None)
Quarter: 2008Q2

REPORT INFORMATION
  Report Type: 
  Country: None (occurrence: None)
  Receive Date: 20080508
  Receipt Date: 20080508
  Transmission Date: 20081010
  Serious: Yes (Other)
  Sender: FDA-Public Use
  Company Number: None

PATIENT
  Age: 61 Year
  Sex: Female
  Weight: 77.1115 kg

DRUGS (3)
  1. PAXIL CR [Suspect]
     Indication: ANXIETY
     Dosage: 1 TABLET 1 TIME A DAY
     Dates: start: 20000405, end: 20080508
  2. PAXIL CR [Suspect]
     Indication: DEPRESSION
     Dosage: 1 TABLET 1 TIME A DAY
     Dates: start: 20000405, end: 20080508
  3. PAXIL CR [Concomitant]

REACTIONS (5)
  - AGGRESSION [None]
  - DRUG WITHDRAWAL SYNDROME [None]
  - FEELING OF BODY TEMPERATURE CHANGE [None]
  - INFLUENZA LIKE ILLNESS [None]
  - OVERWEIGHT [None]
